FAERS Safety Report 6752436-1 (Version None)
Quarter: 2010Q2

REPORT INFORMATION
  Report Type: 
  Country: None (occurrence: None)
  Receive Date: 20100602
  Receipt Date: 20100531
  Transmission Date: 20101027
  Serious: Yes (Death)
  Sender: FDA-Public Use
  Company Number: JP-ELI_LILLY_AND_COMPANY-JP201005007854

PATIENT
  Age: 65 Year
  Sex: Male

DRUGS (3)
  1. ALIMTA [Suspect]
     Indication: NON-SMALL CELL LUNG CANCER
     Route: 042
     Dates: start: 20100301
  2. CISPLATIN [Concomitant]
     Indication: NON-SMALL CELL LUNG CANCER
     Dosage: UNK, UNK
     Route: 042
     Dates: start: 20100301, end: 20100301
  3. CARBOPLATIN [Concomitant]
     Indication: NON-SMALL CELL LUNG CANCER
     Dosage: AUC 5, UNK
     Route: 042

REACTIONS (2)
  - FEBRILE NEUTROPENIA [None]
  - PNEUMONIA [None]
